FAERS Safety Report 16576518 (Version 1)
Quarter: 2019Q3

REPORT INFORMATION
  Report Type: Other
  Country: US (occurrence: US)
  Receive Date: 20190716
  Receipt Date: 20190716
  Transmission Date: 20191004
  Serious: No
  Sender: FDA-Public Use
  Company Number: US-SWEDISH ORPHAN BIOVITRUM-2018US1172

PATIENT
  Sex: Male

DRUGS (2)
  1. ORFADIN [Suspect]
     Active Substance: NITISINONE
     Indication: TYROSINAEMIA
     Dates: start: 2017
  2. ORFADIN [Suspect]
     Active Substance: NITISINONE
     Dosage: 1.2 ML, TWICE DAILY
     Route: 048
     Dates: start: 20180626

REACTIONS (3)
  - Amino acid level increased [Not Recovered/Not Resolved]
  - Liver scan abnormal [Unknown]
  - Rash [Not Recovered/Not Resolved]
